FAERS Safety Report 17750694 (Version 1)
Quarter: 2020Q2

REPORT INFORMATION
  Report Type: Report from Study
  Country: IN (occurrence: IN)
  Receive Date: 20200506
  Receipt Date: 20200506
  Transmission Date: 20200714
  Serious: Yes (Death)
  Sender: FDA-Public Use
  Company Number: NVSC2020IN122728

PATIENT
  Age: 70 Year
  Sex: Male

DRUGS (1)
  1. SPEXIB [Suspect]
     Active Substance: CERITINIB
     Indication: NON-SMALL CELL LUNG CANCER METASTATIC
     Dosage: 450 MG, QD
     Route: 048
     Dates: start: 20191204, end: 20200322

REACTIONS (1)
  - Cerebrovascular accident [Fatal]
